FAERS Safety Report 9351372 (Version 1)
Quarter: 2013Q2

REPORT INFORMATION
  Report Type: Report from Study
  Country: AU (occurrence: AU)
  Receive Date: 20130617
  Receipt Date: 20130617
  Transmission Date: 20140414
  Serious: Yes (Death, Disabling)
  Sender: FDA-Public Use
  Company Number: AU-EISAI INC-E7272-00149-CLI-AU

PATIENT
  Age: 58 Year
  Sex: Male

DRUGS (1)
  1. ONTAK [Suspect]
     Indication: CHRONIC LYMPHOCYTIC LEUKAEMIA
     Dosage: UNKNOWN
     Route: 065

REACTIONS (4)
  - Adenocarcinoma [Fatal]
  - Vision blurred [Not Recovered/Not Resolved]
  - Photopsia [Not Recovered/Not Resolved]
  - Photophobia [Not Recovered/Not Resolved]
